FAERS Safety Report 5023835-3 (Version None)
Quarter: 2006Q2

REPORT INFORMATION
  Report Type: 
  Country: None (occurrence: None)
  Receive Date: 20060606
  Receipt Date: 20060526
  Transmission Date: 20061013
  Serious: Yes (Other)
  Sender: FDA-Public Use
  Company Number: HQWYE580731MAY06

PATIENT
  Sex: Male

DRUGS (1)
  1. MYLOTARG [Suspect]

REACTIONS (1)
  - VENOOCCLUSIVE LIVER DISEASE [None]
